FAERS Safety Report 16560093 (Version 1)
Quarter: 2019Q3

REPORT INFORMATION
  Report Type: Spontaneous
  Country: US (occurrence: US)
  Receive Date: 20190711
  Receipt Date: 20190711
  Transmission Date: 20191004
  Serious: Yes (Other)
  Sender: FDA-Public Use
  Company Number: US-GLAXOSMITHKLINE-US2019AMR123522

PATIENT
  Sex: Female
  Weight: 59 kg

DRUGS (1)
  1. EXCEDRIN [Suspect]
     Active Substance: ACETAMINOPHEN\ASPIRIN\CAFFEINE
     Indication: HEADACHE
     Dosage: UNK UNK, PRN
     Dates: start: 201806

REACTIONS (2)
  - Ulcer haemorrhage [Recovered/Resolved]
  - Incorrect product administration duration [Unknown]
